FAERS Safety Report 9701931 (Version 1)
Quarter: 2013Q4

REPORT INFORMATION
  Report Type: Spontaneous
  Country: US (occurrence: None)
  Receive Date: 20131120
  Receipt Date: 20131120
  Transmission Date: 20140711
  Serious: Yes (Other)
  Sender: FDA-Public Use
  Company Number: None

PATIENT
  Age: 16 Year
  Sex: Male
  Weight: 76.8 kg

DRUGS (2)
  1. DEPAKOTE [Suspect]
     Indication: CONVULSION
     Route: 048
     Dates: start: 201306
  2. DEPAKOTE [Suspect]
     Indication: MYOCLONIC EPILEPSY
     Route: 048
     Dates: start: 201306

REACTIONS (2)
  - Product substitution issue [None]
  - Myoclonus [None]
